FAERS Safety Report 5369574-0 (Version None)
Quarter: 2007Q2

REPORT INFORMATION
  Report Type: 
  Country: None (occurrence: None)
  Receive Date: 20070621
  Receipt Date: 20070524
  Transmission Date: 20071010
  Serious: Yes (Other)
  Sender: FDA-Public Use
  Company Number: FDB-2007-010

PATIENT
  Age: 50 Year
  Sex: Female

DRUGS (1)
  1. CIS-SULFUR COLLOID [Suspect]
     Indication: SCAN LYMPH NODES
     Dosage: SEE IMAGE (SCAN)
     Route: 021
     Dates: start: 20070508

REACTIONS (3)
  - INJECTION SITE IRRITATION [None]
  - INJECTION SITE SCAB [None]
  - INJECTION SITE SWELLING [None]
